FAERS Safety Report 13317863 (Version 1)
Quarter: 2017Q1

REPORT INFORMATION
  Report Type: Spontaneous
  Country: US (occurrence: US)
  Receive Date: 20170309
  Receipt Date: 20170309
  Transmission Date: 20170428
  Serious: Yes (Life-Threatening, Hospitalization, Disabling)
  Sender: FDA-Public Use
  Company Number: None

PATIENT
  Age: 39 Year
  Sex: Male
  Weight: 90 kg

DRUGS (7)
  1. XARELTO [Suspect]
     Active Substance: RIVAROXABAN
     Indication: THROMBOSIS
     Dosage: ?          QUANTITY:1 TABLET(S);?
     Route: 048
     Dates: start: 20150715, end: 20151208
  2. PERCOCET [Concomitant]
     Active Substance: ACETAMINOPHEN\OXYCODONE HYDROCHLORIDE
  3. PANTOPRAZOLE [Concomitant]
     Active Substance: PANTOPRAZOLE SODIUM
  4. BUTRANS [Concomitant]
     Active Substance: BUPRENORPHINE
  5. NURONTON [Concomitant]
  6. BABY ASPIRIN [Concomitant]
     Active Substance: ASPIRIN
  7. WARFARIN [Concomitant]
     Active Substance: WARFARIN

REACTIONS (4)
  - Swelling [None]
  - Surgical procedure repeated [None]
  - Pain [None]
  - Device occlusion [None]

NARRATIVE: CASE EVENT DATE: 20150715
